FAERS Safety Report 6031761-6 (Version None)
Quarter: 2009Q1

REPORT INFORMATION
  Report Type: 
  Country: None (occurrence: None)
  Receive Date: 20090108
  Receipt Date: 20081230
  Transmission Date: 20090719
  Serious: Yes (Hospitalization, Other)
  Sender: FDA-Public Use
  Company Number: US-MERCK-0805USA00447

PATIENT
  Age: 59 Year
  Sex: Female
  Weight: 77 kg

DRUGS (4)
  1. FOSAMAX [Suspect]
     Indication: PROPHYLAXIS
     Route: 048
     Dates: start: 20040101
  2. FOSAMAX [Suspect]
     Indication: RESORPTION BONE INCREASED
     Route: 048
     Dates: start: 20040101
  3. TOPAMAX [Concomitant]
     Indication: DEPRESSION
     Route: 065
     Dates: start: 20070101
  4. TOPAMAX [Concomitant]
     Indication: ANXIETY
     Route: 065
     Dates: start: 20070101

REACTIONS (31)
  - ADVERSE DRUG REACTION [None]
  - ANXIETY [None]
  - CHRONIC OBSTRUCTIVE PULMONARY DISEASE [None]
  - CONSTIPATION [None]
  - DENTAL ALVEOLAR ANOMALY [None]
  - DEPRESSION [None]
  - DRUG HYPERSENSITIVITY [None]
  - DRUG INEFFECTIVE [None]
  - DYSPHAGIA [None]
  - EPSTEIN-BARR VIRAEMIA [None]
  - FAILURE OF IMPLANT [None]
  - FIBROMYALGIA [None]
  - GRAFT INFECTION [None]
  - HYPERLIPIDAEMIA [None]
  - HYPERSENSITIVITY [None]
  - HYPOAESTHESIA [None]
  - JAW DISORDER [None]
  - LIVER DISORDER [None]
  - MUSCULOSKELETAL DISCOMFORT [None]
  - NASAL DISORDER [None]
  - ORAL CANDIDIASIS [None]
  - ORAL DISORDER [None]
  - OSTEONECROSIS [None]
  - RHINITIS [None]
  - SINUS HEADACHE [None]
  - SINUSITIS [None]
  - SKIN IRRITATION [None]
  - STRESS [None]
  - SYSTEMIC LUPUS ERYTHEMATOSUS DISEASE ACTIVITY INDEX INCREASED [None]
  - WEIGHT INCREASED [None]
  - WOUND DEHISCENCE [None]
